FAERS Safety Report 5065499-9 (Version None)
Quarter: 2006Q3

REPORT INFORMATION
  Report Type: 
  Country: None (occurrence: None)
  Receive Date: 20060731
  Receipt Date: 20060721
  Transmission Date: 20061208
  Serious: Yes (Other)
  Sender: FDA-Public Use
  Company Number: PHMT2006CA01571

PATIENT
  Age: 49 Year
  Sex: Female

DRUGS (1)
  1. ESTRADERM [Suspect]
     Indication: MENOPAUSAL SYMPTOMS
     Route: 062
     Dates: start: 19860101

REACTIONS (2)
  - DERMATITIS ALLERGIC [None]
  - SKIN INFECTION [None]
